FAERS Safety Report 18960451 (Version 1)
Quarter: 2021Q1

REPORT INFORMATION
  Report Type: Spontaneous
  Country: US (occurrence: US)
  Receive Date: 20210303
  Receipt Date: 20210303
  Transmission Date: 20210420
  Serious: No
  Sender: FDA-Public Use
  Company Number: US-ELI_LILLY_AND_COMPANY-US202102012310

PATIENT
  Sex: Female

DRUGS (6)
  1. LANTUS [Concomitant]
     Active Substance: INSULIN GLARGINE
     Indication: TYPE 2 DIABETES MELLITUS
     Dosage: 36 U, EACH EVENING (NIGHT)
  2. HUMALOG [Suspect]
     Active Substance: INSULIN LISPRO
     Dosage: 4?12 U, PRN (SLIDING SCALE)
     Route: 058
     Dates: start: 202101
  3. HUMALOG [Suspect]
     Active Substance: INSULIN LISPRO
     Indication: TYPE 2 DIABETES MELLITUS
     Dosage: UNK UNK, UNKNOWN
     Route: 058
     Dates: start: 20210128
  4. HUMALOG [Suspect]
     Active Substance: INSULIN LISPRO
     Dosage: UNK UNK, UNKNOWN
     Route: 058
     Dates: start: 20210128
  5. HUMALOG [Suspect]
     Active Substance: INSULIN LISPRO
     Indication: TYPE 2 DIABETES MELLITUS
     Dosage: 4?12 U, PRN (SLIDING SCALE)
     Route: 058
     Dates: start: 202101
  6. LANTUS [Concomitant]
     Active Substance: INSULIN GLARGINE
     Dosage: 40 U, EACH EVENING (NIGHT)

REACTIONS (2)
  - Drug ineffective [Not Recovered/Not Resolved]
  - Incorrect product administration duration [Recovered/Resolved]
